FAERS Safety Report 5107620-X (Version None)
Quarter: 2006Q3

REPORT INFORMATION
  Report Type: 
  Country: None (occurrence: None)
  Receive Date: 20060919
  Receipt Date: 20060907
  Transmission Date: 20061208
  Serious: Yes (Hospitalization)
  Sender: FDA-Public Use
  Company Number: GB-BRISTOL-MYERS SQUIBB COMPANY-13502570

PATIENT
  Sex: Female

DRUGS (2)
  1. ABILIFY [Suspect]
  2. BENZODIAZEPINES [Concomitant]

REACTIONS (1)
  - PSYCHOTIC DISORDER [None]
